FAERS Safety Report 20528135 (Version 1)
Quarter: 2022Q1

REPORT INFORMATION
  Report Type: Spontaneous
  Country: FR (occurrence: FR)
  Receive Date: 20220228
  Receipt Date: 20220228
  Transmission Date: 20220423
  Serious: Yes (Other)
  Sender: FDA-Public Use
  Company Number: FR-DENTSPLY-2022SCDP000034

PATIENT
  Age: 70 Year
  Sex: Female

DRUGS (3)
  1. XYLOCAINE [Suspect]
     Active Substance: LIDOCAINE HYDROCHLORIDE
     Indication: Back pain
     Dosage: 3 MILLILITER
     Route: 058
     Dates: start: 20210929
  2. THIOCOLCHICOSIDE [Suspect]
     Active Substance: THIOCOLCHICOSIDE
     Indication: Back pain
     Dosage: 1 VIAL
     Route: 058
     Dates: start: 20210929
  3. PIROXICAM [Suspect]
     Active Substance: PIROXICAM
     Indication: Back pain
     Dosage: 20 MILLIGRAM (1 VIAL) SOLUTION FOR INJECTION
     Route: 058
     Dates: start: 20210929

REACTIONS (10)
  - Gait disturbance [None]
  - Spinal fracture [None]
  - Bone pain [None]
  - Pain in extremity [None]
  - Burning sensation [None]
  - Product use in unapproved indication [None]
  - Product administered at inappropriate site [Unknown]
  - Incorrect route of product administration [Unknown]
  - Product prescribing error [Unknown]
  - Tremor [None]

NARRATIVE: CASE EVENT DATE: 20210101
